FAERS Safety Report 4583214-X (Version None)
Quarter: 2005Q1

REPORT INFORMATION
  Report Type: 
  Country: None (occurrence: None)
  Receive Date: 20050125
  Receipt Date: 20040824
  Transmission Date: 20050727
  Serious: No
  Sender: FDA-Public Use
  Company Number: USA030844588

PATIENT
  Sex: Female
  Weight: 41 kg

DRUGS (6)
  1. FORTEO [Suspect]
     Indication: OSTEOPOROSIS
     Dosage: 20 UG DAY
     Dates: start: 20030418
  2. ATENOLOL [Concomitant]
  3. LOTENSIN [Concomitant]
  4. ACETYLSALICYLIC ACID SRT [Concomitant]
  5. PRAVACHOL [Concomitant]
  6. CALCIUM PLUS D [Concomitant]

REACTIONS (4)
  - ARTHRALGIA [None]
  - INJECTION SITE HAEMORRHAGE [None]
  - MUSCLE SPASMS [None]
  - PAIN IN EXTREMITY [None]
